FAERS Safety Report 10068814 (Version 1)
Quarter: 2014Q2

REPORT INFORMATION
  Report Type: Spontaneous
  Country: US (occurrence: US)
  Receive Date: 20140409
  Receipt Date: 20140409
  Transmission Date: 20141212
  Serious: No
  Sender: FDA-Public Use
  Company Number: US-009507513-1404USA004560

PATIENT
  Sex: Male
  Weight: 77.98 kg

DRUGS (4)
  1. MIRALAX [Suspect]
     Indication: HAEMORRHOIDS
     Dosage: 17 G, Q3D
     Route: 048
  2. OMEPRAZOLE [Concomitant]
     Indication: GASTROOESOPHAGEAL REFLUX DISEASE
     Dosage: UNK, UNKNOWN
  3. METAMUCIL [Concomitant]
     Indication: HAEMORRHOIDS
     Dosage: UNK, Q2D
  4. BENEFIBER [Concomitant]
     Indication: PRODUCT USED FOR UNKNOWN INDICATION
     Dosage: UNK, Q2D

REACTIONS (3)
  - Inappropriate schedule of drug administration [Unknown]
  - Off label use [Unknown]
  - Product physical issue [Unknown]
